FAERS Safety Report 8197653-1 (Version None)
Quarter: 2012Q1

REPORT INFORMATION
  Report Type: 
  Country: None (occurrence: None)
  Receive Date: 20120309
  Receipt Date: 20120302
  Transmission Date: 20120608
  Serious: Yes (Hospitalization, Other)
  Sender: FDA-Public Use
  Company Number: CZ-ROCHE-1045065

PATIENT
  Sex: Male

DRUGS (11)
  1. ESSENTIALE FORTE [Concomitant]
  2. ACIDUM FOLICUM [Concomitant]
  3. MABTHERA [Suspect]
     Indication: RHEUMATOID ARTHRITIS
     Route: 042
     Dates: start: 20090828
  4. TENAXUM [Concomitant]
  5. METHOTREXATE [Concomitant]
  6. LOZAP H [Concomitant]
  7. SIMVASTATIN [Concomitant]
  8. CALCIUM [Concomitant]
  9. VIGANTOL [Concomitant]
  10. CARVEDILOL [Concomitant]
  11. APO-PANTOPRAZOLE [Concomitant]

REACTIONS (2)
  - MYOCARDIAL ISCHAEMIA [None]
  - STENT PLACEMENT [None]
